FAERS Safety Report 15605307 (Version 1)
Quarter: 2018Q4

REPORT INFORMATION
  Report Type: Report from Study
  Country: US (occurrence: US)
  Receive Date: 20181112
  Receipt Date: 20181112
  Transmission Date: 20190205
  Serious: Yes (Other)
  Sender: FDA-Public Use
  Company Number: PHEH2018US046816

PATIENT
  Sex: Male

DRUGS (1)
  1. ILARIS [Suspect]
     Active Substance: CANAKINUMAB
     Indication: FAMILIAL AMYLOIDOSIS
     Dosage: 150 MG, EVERY 4 WEEKS
     Route: 058

REACTIONS (3)
  - Condition aggravated [Unknown]
  - Amyloidosis [Unknown]
  - Product use in unapproved indication [Unknown]
